FAERS Safety Report 5937289-3 (Version None)
Quarter: 2008Q4

REPORT INFORMATION
  Report Type: 
  Country: None (occurrence: None)
  Receive Date: 20081031
  Receipt Date: 20081027
  Transmission Date: 20090506
  Serious: Yes (Hospitalization, Other)
  Sender: FDA-Public Use
  Company Number: US-WYE-H06586608

PATIENT
  Age: 22 Year
  Sex: Male

DRUGS (4)
  1. DEXTROMETHORPHAN HYDROBROMIDE [Suspect]
     Indication: DRUG ABUSE
     Dosage: SEVERAL BOTTLES
     Route: 048
  2. FLUOXETINE [Suspect]
     Indication: BIPOLAR I DISORDER
     Route: 048
  3. CLONAZEPAM [Concomitant]
     Indication: BIPOLAR I DISORDER
     Route: 048
  4. LITHIUM [Suspect]
     Indication: BIPOLAR I DISORDER
     Route: 048

REACTIONS (5)
  - DISSOCIATION [None]
  - DRUG ABUSE [None]
  - HALLUCINATION [None]
  - INTENTIONAL OVERDOSE [None]
  - SEROTONIN SYNDROME [None]
